FAERS Safety Report 24359158 (Version 1)
Quarter: 2024Q3

REPORT INFORMATION
  Report Type: Spontaneous
  Country: US (occurrence: US)
  Receive Date: 20240924
  Receipt Date: 20240924
  Transmission Date: 20241017
  Serious: Yes (Death)
  Sender: PURDUE
  Company Number: US-PURDUE PHARMA-USA-2024-0312125

PATIENT
  Sex: Female

DRUGS (1)
  1. OXYCONTIN [Suspect]
     Active Substance: OXYCODONE HYDROCHLORIDE
     Indication: Substance abuse
     Dosage: UNK
     Route: 048

REACTIONS (2)
  - Head injury [Fatal]
  - Off label use [Unknown]

NARRATIVE: CASE EVENT DATE: 20201010
